FAERS Safety Report 8120897-1 (Version None)
Quarter: 2012Q1

REPORT INFORMATION
  Report Type: 
  Country: None (occurrence: None)
  Receive Date: 20120203
  Receipt Date: 20120123
  Transmission Date: 20120608
  Serious: Yes (Hospitalization, Disabling, Other)
  Sender: FDA-Public Use
  Company Number: 2012P1003284

PATIENT
  Age: 16 Year
  Sex: Female
  Weight: 41.4 kg

DRUGS (4)
  1. RISPERIDONE [Suspect]
     Indication: SOCIAL PHOBIA
     Dosage: 2.25 MG;QD ; 4.5 MG;QD ; 1 MG;PRN
  2. RISPERIDONE [Suspect]
     Indication: OBSESSIVE-COMPULSIVE DISORDER
     Dosage: 2.25 MG;QD ; 4.5 MG;QD ; 1 MG;PRN
  3. RISPERIDONE [Suspect]
     Indication: PSYCHOTIC DISORDER
     Dosage: 2.25 MG;QD ; 4.5 MG;QD ; 1 MG;PRN
  4. CITALOPRAM [Concomitant]

REACTIONS (10)
  - DYSTONIA [None]
  - CACHEXIA [None]
  - CONTUSION [None]
  - DYSKINESIA [None]
  - HALLUCINATION, AUDITORY [None]
  - CONVERSION DISORDER [None]
  - SUICIDE ATTEMPT [None]
  - GAIT DISTURBANCE [None]
  - WEIGHT DECREASED [None]
  - ACTIVITIES OF DAILY LIVING IMPAIRED [None]
